FAERS Safety Report 6100179-X (Version None)
Quarter: 2009Q1

REPORT INFORMATION
  Report Type: 
  Country: None (occurrence: None)
  Receive Date: 20090302
  Receipt Date: 20090302
  Transmission Date: 20090719
  Serious: Yes (Other)
  Sender: FDA-Public Use
  Company Number: None

PATIENT
  Age: 59 Year
  Sex: Female
  Weight: 88.905 kg

DRUGS (2)
  1. METOCLOPRAMIDE [Suspect]
     Indication: DYSPEPSIA
     Dosage: 1 TAB OF ^M^ 4 X'S DAILY AS PRESCRIBED PO TIME BEFORE THAT
     Route: 048
     Dates: start: 20060611
  2. METOCLOPRAMIDE [Suspect]
     Indication: GASTROINTESTINAL MOTILITY DISORDER
     Dosage: 1 TAB OF ^M^ 4 X'S DAILY AS PRESCRIBED PO TIME BEFORE THAT
     Route: 048
     Dates: start: 20060611

REACTIONS (4)
  - CONDITION AGGRAVATED [None]
  - NO THERAPEUTIC RESPONSE [None]
  - RESTLESS LEGS SYNDROME [None]
  - TREATMENT NONCOMPLIANCE [None]
